FAERS Safety Report 4421458-8 (Version None)
Quarter: 2004Q3

REPORT INFORMATION
  Report Type: 
  Country: None (occurrence: None)
  Receive Date: 20040712
  Receipt Date: 20040322
  Transmission Date: 20050211
  Serious: No
  Sender: FDA-Public Use
  Company Number: 2004-03-1636

PATIENT
  Sex: Male

DRUGS (1)
  1. CLARINEX [Suspect]
     Dosage: 1 TAB QD ORAL
     Route: 048
     Dates: start: 20031001, end: 20040201

REACTIONS (1)
  - HEPATITIS B ANTIBODY POSITIVE [None]
